FAERS Safety Report 5139694-4 (Version None)
Quarter: 2006Q4

REPORT INFORMATION
  Report Type: 
  Country: None (occurrence: None)
  Receive Date: 20061024
  Receipt Date: 20061012
  Transmission Date: 20070319
  Serious: Yes (Life-Threatening)
  Sender: FDA-Public Use
  Company Number: 2006JP001463

PATIENT
  Age: 51 Year
  Sex: Male
  Weight: 56 kg

DRUGS (16)
  1. FUNGUARD (MICAFUNGIN) INJECTION [Suspect]
     Dosage: 150 MG, UID/QD, IV DRIP; SEE IMAGE
     Route: 041
     Dates: start: 20060508, end: 20060509
  2. FUNGUARD (MICAFUNGIN) INJECTION [Suspect]
     Dosage: 150 MG, UID/QD, IV DRIP; SEE IMAGE
     Route: 041
     Dates: start: 20060518, end: 20060518
  3. VFEND [Concomitant]
  4. TARGOCID [Concomitant]
  5. CIPROXAN (CIPROFLOXACIN HYDROCHLORIDE) [Concomitant]
  6. MEROPEN (MEROPENEM) [Concomitant]
  7. OMEPRAZOLE [Concomitant]
  8. NEUART [Concomitant]
  9. ORGARAN [Concomitant]
  10. HUMULIN (INSULIN HUMAN INJECTION, ISOPHANE) [Concomitant]
  11. SOL MEDROL (METHYLPREDNISOLONE, SUCCINATE SODIUM) [Concomitant]
  12. GASTER INJECTION [Concomitant]
  13. PREDOPA (DOPAMINE HYDROCHLORIDE) [Concomitant]
  14. FENTANYL CITRATE [Concomitant]
  15. DIPRIVAN [Concomitant]
  16. EPIQUICK (EPINEPHRINE) [Concomitant]

REACTIONS (12)
  - BLINDNESS [None]
  - BRADYCARDIA [None]
  - CARDIAC ARREST [None]
  - CONTINUOUS HAEMODIAFILTRATION [None]
  - DYSPNOEA [None]
  - HAEMODIALYSIS [None]
  - INTRAVASCULAR HAEMOLYSIS [None]
  - PNEUMONIA [None]
  - RENAL FAILURE ACUTE [None]
  - SHOCK [None]
  - URTICARIA [None]
  - VENTRICULAR TACHYCARDIA [None]
